FAERS Safety Report 9780504 (Version 4)
Quarter: 2014Q2

REPORT INFORMATION
  Report Type: Report from Study
  Country: TR (occurrence: TR)
  Receive Date: 20131224
  Receipt Date: 20140624
  Transmission Date: 20141212
  Serious: Yes (Hospitalization, Other)
  Sender: FDA-Public Use
  Company Number: TR-ABBVIE-13P-161-1181978-00

PATIENT
  Age: 34 Year
  Sex: Female
  Weight: 65 kg

DRUGS (2)
  1. HUMIRA [Suspect]
     Indication: RHEUMATOID ARTHRITIS
     Route: 058
     Dates: start: 20121121, end: 20131210
  2. HUMIRA [Suspect]
     Dates: end: 20140227

REACTIONS (3)
  - Joint injury [Recovering/Resolving]
  - Ovarian cyst [Not Recovered/Not Resolved]
  - Endometrial hyperplasia [Recovering/Resolving]
